FAERS Safety Report 5252966-8 (Version None)
Quarter: 2007Q1

REPORT INFORMATION
  Report Type: 
  Country: None (occurrence: None)
  Receive Date: 20070227
  Receipt Date: 20070214
  Transmission Date: 20070707
  Serious: No
  Sender: FDA-Public Use
  Company Number: 2005-135678-NL

PATIENT
  Age: 24 Year
  Sex: Female

DRUGS (1)
  1. ETONOGESTREL [Suspect]
     Dosage: DF
     Dates: start: 20010404, end: 20060703

REACTIONS (4)
  - BREAST CANCER FEMALE [None]
  - DEVICE MIGRATION [None]
  - PROCEDURAL PAIN [None]
  - SCAR [None]
